FAERS Safety Report 5832160-X (Version None)
Quarter: 2008Q3

REPORT INFORMATION
  Report Type: 
  Country: None (occurrence: None)
  Receive Date: 20080804
  Receipt Date: 20080724
  Transmission Date: 20090109
  Serious: Yes (Other)
  Sender: FDA-Public Use
  Company Number: US-WYE-H05215808

PATIENT
  Age: 37 Year
  Sex: Female
  Weight: 63.56 kg

DRUGS (9)
  1. PRISTIQ [Suspect]
     Indication: DEPRESSION
     Route: 048
     Dates: start: 20080630, end: 20080723
  2. TOPAMAX [Concomitant]
     Indication: DEPRESSION
     Route: 048
  3. TOPAMAX [Concomitant]
     Indication: MIGRAINE
  4. VITAMIN B-12 [Concomitant]
     Dosage: UNKNOWN
  5. SYNTHROID [Concomitant]
     Indication: HYPOTHYROIDISM
     Dosage: 0.25 MG
  6. CONCERTA [Concomitant]
     Indication: FATIGUE
     Dosage: 2-36 MG IN AM
  7. MAGNESIUM SULFATE [Concomitant]
     Indication: MIGRAINE
     Dosage: 600 MG
  8. AMFEBUTAMONE HYDROCHLORIDE [Concomitant]
     Indication: DEPRESSION
     Dosage: UNKNOWN
  9. KLONOPIN [Concomitant]
     Indication: RESTLESS LEGS SYNDROME
     Dosage: UNKNOWN

REACTIONS (7)
  - AGGRESSION [None]
  - ANXIETY [None]
  - DIARRHOEA [None]
  - GASTROINTESTINAL SOUNDS ABNORMAL [None]
  - INSOMNIA [None]
  - IRRITABILITY [None]
  - TREMOR [None]
